FAERS Safety Report 9500803 (Version 1)
Quarter: 2013Q1

REPORT INFORMATION
  Report Type: Spontaneous
  Country: US (occurrence: None)
  Receive Date: 20130107
  Receipt Date: 20130107
  Transmission Date: 20140127
  Serious: No
  Sender: FDA-Public Use
  Company Number: PHHY2012US102656

PATIENT
  Age: 51 Year
  Sex: Female

DRUGS (10)
  1. GILENYA (FINGOLIMOD) [Suspect]
     Indication: MULTIPLE SCLEROSIS
     Route: 048
     Dates: start: 20110308
  2. UNSPECIFIED INGREDIENT [Suspect]
  3. PRISTIQ (DESVENLAFAXINE SUCCINATE) [Concomitant]
  4. SOMA (CARISOPRODOL) [Concomitant]
  5. BACLOFEN (BACLOFEN) [Concomitant]
  6. OMEPRAZOLE (OMEPRAZOLE) [Concomitant]
  7. LIPOGEN (CHOLINE, INOSITOL, VITAMINS NOS) [Concomitant]
  8. B COMPLEX (NICOTINAMIDE, PYRIDOXINE HYDROCHLORIDE, RIBOFLAVIN, THIAMINE HYDROCHLORIDE) [Concomitant]
  9. FISH OIL (FISH OIL) [Concomitant]
  10. ZANTAC (RANITIDINE HYDROCHLORIDE) [Concomitant]

REACTIONS (2)
  - Memory impairment [None]
  - Asthenia [None]
